FAERS Safety Report 8103064-7 (Version None)
Quarter: 2012Q1

REPORT INFORMATION
  Report Type: 
  Country: None (occurrence: None)
  Receive Date: 20120201
  Receipt Date: 20120127
  Transmission Date: 20120608
  Serious: No
  Sender: FDA-Public Use
  Company Number: US-BAYER-2012-009796

PATIENT

DRUGS (3)
  1. IBUPROFEN [Suspect]
     Indication: TOOTHACHE
  2. ORAJEL [Concomitant]
     Indication: TOOTHACHE
  3. ALEVE (CAPLET) [Suspect]
     Indication: TOOTHACHE

REACTIONS (1)
  - PAIN [None]
